FAERS Safety Report 12208640 (Version 1)
Quarter: 2016Q1

REPORT INFORMATION
  Report Type: Spontaneous
  Country: US (occurrence: US)
  Receive Date: 20160324
  Receipt Date: 20160324
  Transmission Date: 20160526
  Serious: No
  Sender: FDA-Public Use
  Company Number: US-SHIONOGI, INC-2015001013

PATIENT
  Age: 57 Year
  Sex: Female

DRUGS (3)
  1. OSPHENA [Suspect]
     Active Substance: OSPEMIFENE
     Indication: DYSPAREUNIA
     Dosage: 60 MG, QD
     Route: 048
     Dates: start: 20150901
  2. LYRICA [Concomitant]
     Active Substance: PREGABALIN
     Indication: NEURALGIA
  3. LYRICA [Concomitant]
     Active Substance: PREGABALIN
     Indication: CYSTITIS INTERSTITIAL
     Dosage: UNK
     Route: 065
     Dates: start: 2005

REACTIONS (7)
  - Disturbance in attention [Not Recovered/Not Resolved]
  - Hot flush [Not Recovered/Not Resolved]
  - Inability to afford medication [Unknown]
  - Nightmare [Not Recovered/Not Resolved]
  - Feeling abnormal [Not Recovered/Not Resolved]
  - Depressed mood [Not Recovered/Not Resolved]
  - Poor quality sleep [Not Recovered/Not Resolved]

NARRATIVE: CASE EVENT DATE: 20150908
